FAERS Safety Report 21141882 (Version 1)
Quarter: 2022Q3

REPORT INFORMATION
  Report Type: Spontaneous
  Country: US (occurrence: US)
  Receive Date: 20220728
  Receipt Date: 20220728
  Transmission Date: 20221027
  Serious: Yes (Other)
  Sender: FDA-Public Use
  Company Number: US-ASTELLAS-2022US026674

PATIENT
  Age: 27 Year
  Sex: Male

DRUGS (5)
  1. AMBISOME [Suspect]
     Active Substance: AMPHOTERICIN B
     Indication: Pneumocystis jirovecii pneumonia
     Dosage: UNK UNK, UNKNOWN FREQ.
     Route: 065
  2. AMBISOME [Suspect]
     Active Substance: AMPHOTERICIN B
     Indication: Cryptococcosis
  3. FLUCONAZOLE [Concomitant]
     Active Substance: FLUCONAZOLE
     Indication: Pneumocystis jirovecii pneumonia
     Dosage: UNK UNK, UNKNOWN FREQ.
     Route: 065
  4. BACTRIM [Concomitant]
     Active Substance: SULFAMETHOXAZOLE\TRIMETHOPRIM
     Indication: Pneumocystis jirovecii pneumonia
     Dosage: UNK UNK, UNKNOWN FREQ.
     Route: 065
  5. FLUCYTOSINE [Concomitant]
     Active Substance: FLUCYTOSINE
     Indication: Product used for unknown indication
     Dosage: UNK UNK, UNKNOWN FREQ.
     Route: 065

REACTIONS (1)
  - Drug ineffective [Unknown]
